FAERS Safety Report 9144059 (Version 2)
Quarter: 2013Q3

REPORT INFORMATION
  Report Type: Spontaneous
  Country: CA (occurrence: CA)
  Receive Date: 20130306
  Receipt Date: 20130709
  Transmission Date: 20140515
  Serious: Yes (Hospitalization)
  Sender: FDA-Public Use
  Company Number: CA-ABBOTT-13X-028-1056940-00

PATIENT
  Age: 34 Year
  Sex: Male

DRUGS (9)
  1. DIVALPROEX SODIUM [Suspect]
     Indication: PRODUCT USED FOR UNKNOWN INDICATION
  2. EPIVAL [Suspect]
     Indication: PRODUCT USED FOR UNKNOWN INDICATION
     Route: 048
  3. SYNTHROID [Suspect]
     Indication: PRODUCT USED FOR UNKNOWN INDICATION
  4. ABILIFY [Suspect]
     Indication: DEPRESSION
     Route: 048
  5. ABILIFY [Suspect]
     Route: 048
  6. CELEXA [Suspect]
     Indication: PRODUCT USED FOR UNKNOWN INDICATION
     Route: 048
  7. CELEXA [Suspect]
     Route: 048
  8. METFORMIN [Suspect]
     Indication: PRODUCT USED FOR UNKNOWN INDICATION
     Route: 048
  9. ZYLOPRIM [Suspect]
     Indication: PRODUCT USED FOR UNKNOWN INDICATION
     Route: 048

REACTIONS (5)
  - Muscle spasms [Recovering/Resolving]
  - Mydriasis [Recovering/Resolving]
  - Drug administration error [Recovering/Resolving]
  - Medication error [Recovering/Resolving]
  - Somnolence [Recovering/Resolving]
